FAERS Safety Report 15646363 (Version 1)
Quarter: 2018Q4

REPORT INFORMATION
  Report Type: Spontaneous
  Country: SE (occurrence: SE)
  Receive Date: 20181122
  Receipt Date: 20181122
  Transmission Date: 20190205
  Serious: Yes (Hospitalization)
  Sender: FDA-Public Use
  Company Number: SE-AUROBINDO-AUR-APL-2018-056115

PATIENT
  Age: 32 Year
  Sex: Male

DRUGS (1)
  1. LAMOTRIGINE. [Suspect]
     Active Substance: LAMOTRIGINE
     Indication: PRODUCT USED FOR UNKNOWN INDICATION
     Dosage: UNK
     Route: 065
     Dates: start: 201810, end: 20181017

REACTIONS (3)
  - Balance disorder [Recovered/Resolved]
  - Fatigue [Recovered/Resolved]
  - Confusional state [Recovered/Resolved]

NARRATIVE: CASE EVENT DATE: 201810
